FAERS Safety Report 9228274 (Version 1)
Quarter: 2013Q2

REPORT INFORMATION
  Report Type: Spontaneous
  Country: US (occurrence: US)
  Receive Date: 20130412
  Receipt Date: 20130412
  Transmission Date: 20140414
  Serious: Yes (Hospitalization, Other)
  Sender: FDA-Public Use
  Company Number: US-PFIZER INC-2013115848

PATIENT
  Sex: Female
  Weight: 134 kg

DRUGS (3)
  1. LYRICA [Suspect]
     Indication: FIBROMYALGIA
     Dosage: 600 MG, 1X/DAY
  2. OXYCODONE [Concomitant]
     Indication: PAIN
     Dosage: 90 MG, 1X/DAY
  3. CYMBALTA [Concomitant]
     Indication: FIBROMYALGIA
     Dosage: 60 MG, 1X/DAY

REACTIONS (2)
  - Hernia [Unknown]
  - Pain [Not Recovered/Not Resolved]
